FAERS Safety Report 23154342 (Version 2)
Quarter: 2023Q4

REPORT INFORMATION
  Report Type: Spontaneous
  Country: JP (occurrence: JP)
  Receive Date: 20231107
  Receipt Date: 20231115
  Transmission Date: 20240110
  Serious: Yes (Other)
  Sender: FDA-Public Use
  Company Number: JP-JNJFOC-20231115486

PATIENT
  Age: 20 Year
  Sex: Female

DRUGS (3)
  1. RISPERDAL [Interacting]
     Active Substance: RISPERIDONE
     Indication: Product used for unknown indication
     Route: 048
  2. RISPERDAL [Interacting]
     Active Substance: RISPERIDONE
     Route: 048
  3. VIMPAT [Interacting]
     Active Substance: LACOSAMIDE
     Indication: Product used for unknown indication
     Dosage: DOSE UNKNOWN
     Route: 065

REACTIONS (3)
  - Epilepsy [Unknown]
  - Drug interaction [Unknown]
  - Social anxiety disorder [Unknown]
